FAERS Safety Report 20604529 (Version 2)
Quarter: 2022Q1

REPORT INFORMATION
  Report Type: Other
  Country: PL (occurrence: None)
  Receive Date: 20220316
  Receipt Date: 20220324
  Transmission Date: 20220423
  Serious: No
  Sender: FDA-Public Use
  Company Number: PL-ROCHE-3051217

PATIENT

DRUGS (1)
  1. TOCILIZUMAB [Suspect]
     Active Substance: TOCILIZUMAB
     Indication: COVID-19 pneumonia
     Dosage: 800 MG WITH STANDARD REPEAT 2 DOSES AT 12 - 24 HOURS
     Route: 042
     Dates: start: 20200417, end: 20220207

REACTIONS (2)
  - Off label use [Unknown]
  - No adverse event [Unknown]
